FAERS Safety Report 17802785 (Version 7)
Quarter: 2021Q2

REPORT INFORMATION
  Report Type: Other
  Country: CA (occurrence: CA)
  Receive Date: 20200519
  Receipt Date: 20210605
  Transmission Date: 20210716
  Serious: Yes (Other)
  Sender: FDA-Public Use
  Company Number: CA-ROCHE-1445189

PATIENT
  Age: 29 Year
  Sex: Female
  Weight: 94 kg

DRUGS (9)
  1. ACETAMINOPHEN. [Concomitant]
     Active Substance: ACETAMINOPHEN
  2. NAPROXEN. [Concomitant]
     Active Substance: NAPROXEN
     Indication: PRODUCT USED FOR UNKNOWN INDICATION
     Dosage: ONGOING
     Route: 048
  3. ACETAMINOPHEN;CODEINE [Concomitant]
     Active Substance: ACETAMINOPHEN\CODEINE PHOSPHATE
     Indication: PAIN
     Dosage: 300?30 MG
     Route: 048
  4. ACTEMRA [Suspect]
     Active Substance: TOCILIZUMAB
     Dosage: ONGOING
     Route: 042
     Dates: start: 20160712
  5. ADVIL [Concomitant]
     Active Substance: IBUPROFEN
     Dosage: AS REQUIRED, ONGOING
  6. METHOTREXATE. [Concomitant]
     Active Substance: METHOTREXATE
  7. TYLENOL [Concomitant]
     Active Substance: ACETAMINOPHEN
  8. ACTEMRA [Suspect]
     Active Substance: TOCILIZUMAB
     Indication: RHEUMATOID ARTHRITIS
     Route: 042
     Dates: start: 20140624, end: 20160614
  9. ASCORBIC ACID. [Concomitant]
     Active Substance: ASCORBIC ACID
     Dosage: 7.5?7.5?1,250 MG?UNIT?MCG
     Route: 048

REACTIONS (20)
  - Weight increased [Recovered/Resolved]
  - Heart rate decreased [Recovered/Resolved]
  - Dental caries [Unknown]
  - Malaise [Unknown]
  - Infusion related reaction [Recovered/Resolved]
  - Rheumatoid nodule [Recovered/Resolved]
  - Weight decreased [Not Recovered/Not Resolved]
  - Weight increased [Unknown]
  - Nasopharyngitis [Recovered/Resolved]
  - Arthralgia [Unknown]
  - Pain [Unknown]
  - Abdominal pain [Recovered/Resolved]
  - Hypoaesthesia [Unknown]
  - Contusion [Unknown]
  - Dental caries [Recovered/Resolved]
  - Weight decreased [Unknown]
  - Endodontic procedure [Unknown]
  - Infection [Recovering/Resolving]
  - Blood pressure increased [Recovered/Resolved]
  - Blood pressure diastolic decreased [Unknown]

NARRATIVE: CASE EVENT DATE: 20140725
